FAERS Safety Report 5482423-5 (Version None)
Quarter: 2007Q4

REPORT INFORMATION
  Report Type: 
  Country: None (occurrence: None)
  Receive Date: 20071011
  Receipt Date: 20071003
  Transmission Date: 20080405
  Serious: Yes (Death)
  Sender: FDA-Public Use
  Company Number: B0490546A

PATIENT
  Age: 42 Year
  Sex: Female

DRUGS (2)
  1. ALBENDAZOLE [Suspect]
     Indication: FILARIASIS LYMPHATIC
     Dosage: 400MG SINGLE DOSE
     Route: 048
  2. DIETHYLCARBAMAZINE CITRATE [Suspect]
     Indication: FILARIASIS LYMPHATIC
     Route: 048

REACTIONS (1)
  - DEATH [None]
